FAERS Safety Report 9624559 (Version 1)
Quarter: 2013Q4

REPORT INFORMATION
  Report Type: Spontaneous
  Country: PL (occurrence: None)
  Receive Date: 20131016
  Receipt Date: 20131016
  Transmission Date: 20140711
  Serious: Yes (Other)
  Sender: FDA-Public Use
  Company Number: EUS-2013-00640

PATIENT
  Age: 10 Year
  Sex: Female

DRUGS (1)
  1. ASPARAGINASE [Suspect]
     Indication: PRECURSOR B-LYMPHOBLASTIC LYMPHOMA
     Dosage: 6TH DOSE OF 10 000 IU/M2/D

REACTIONS (3)
  - Pancreatitis acute [None]
  - Cholecystitis [None]
  - Grand mal convulsion [None]
